FAERS Safety Report 14816546 (Version 2)
Quarter: 2018Q2

REPORT INFORMATION
  Report Type: Spontaneous
  Country: IT (occurrence: IT)
  Receive Date: 20180426
  Receipt Date: 20180504
  Transmission Date: 20180711
  Serious: Yes (Other)
  Sender: FDA-Public Use
  Company Number: IT-LUNDBECK-DKLU2047738

PATIENT
  Age: 8 Year
  Sex: Male

DRUGS (4)
  1. VALPROATE SALT [Suspect]
     Active Substance: VALPROATE SODIUM
     Indication: EPILEPSY
     Route: 065
  2. CLOBAZAM [Suspect]
     Active Substance: CLOBAZAM
     Indication: EPILEPSY
     Route: 065
  3. VALPROATE SALT [Suspect]
     Active Substance: VALPROATE SODIUM
     Route: 065
  4. CLOBAZAM [Suspect]
     Active Substance: CLOBAZAM
     Indication: ELECTROENCEPHALOGRAM ABNORMAL

REACTIONS (3)
  - Cerebral atrophy [Unknown]
  - Mental impairment [Recovering/Resolving]
  - Drug ineffective [Unknown]
